FAERS Safety Report 4735706-8 (Version None)
Quarter: 2005Q3

REPORT INFORMATION
  Report Type: 
  Country: None (occurrence: None)
  Receive Date: 20050805
  Receipt Date: 20050629
  Transmission Date: 20060218
  Serious: Yes (Other)
  Sender: FDA-Public Use
  Company Number: PT-BRISTOL-MYERS SQUIBB COMPANY-13027941

PATIENT
  Age: 78 Year
  Sex: Female

DRUGS (2)
  1. ERBITUX [Suspect]
     Indication: COLON CANCER
     Route: 041
     Dates: start: 20050620, end: 20050620
  2. PROPANOLOL HYDROCHLORIDE [Concomitant]

REACTIONS (1)
  - MENINGITIS ASEPTIC [None]
